FAERS Safety Report 9194174 (Version 3)
Quarter: 2013Q3

REPORT INFORMATION
  Report Type: Report from Study
  Country: BR (occurrence: BR)
  Receive Date: 20130327
  Receipt Date: 20130829
  Transmission Date: 20140515
  Serious: Yes (Hospitalization, Other)
  Sender: FDA-Public Use
  Company Number: PHHY2013BR028522

PATIENT
  Sex: Male
  Weight: 67 kg

DRUGS (2)
  1. TRILEPTAL [Suspect]
     Indication: PETIT MAL EPILEPSY
     Dosage: 300 MG, TID
     Route: 048
  2. TRILEPTAL [Suspect]
     Dosage: 600 MG, BID
     Route: 048
     Dates: start: 1995

REACTIONS (3)
  - Nosocomial infection [Recovering/Resolving]
  - Brain neoplasm [Recovered/Resolved]
  - Drug ineffective [Unknown]
